FAERS Safety Report 5164561-X (Version None)
Quarter: 2006Q4

REPORT INFORMATION
  Report Type: 
  Country: None (occurrence: None)
  Receive Date: 20061205
  Receipt Date: 20060922
  Transmission Date: 20070319
  Serious: Yes (Other)
  Sender: FDA-Public Use
  Company Number: DE-ROCHE-464524

PATIENT
  Age: 52 Year
  Sex: Male
  Weight: 103 kg

DRUGS (5)
  1. COPEGUS [Suspect]
     Indication: HEPATITIS C
     Dosage: DOSAGE REGIMEN REPORTED AS 1200.
     Route: 065
     Dates: start: 20050207, end: 20060108
  2. PEGASYS [Suspect]
     Indication: HEPATITIS C
     Dosage: DOSAGE REGIMEN REPORTED AS 180.
     Route: 065
     Dates: start: 20050207, end: 20060108
  3. INTERFERON NOS [Suspect]
     Indication: HEPATITIS C
     Route: 065
     Dates: start: 20050615, end: 20060115
  4. AMANTADINE HCL [Suspect]
     Indication: HEPATITIS C
     Dosage: DOSAGE REGIMEN REPORTED AS 200.
     Route: 065
     Dates: start: 20050207, end: 20060108
  5. ESCITALOPRAM OXALATE [Concomitant]
     Dosage: DOSAGE REGIMEN REPORTED AS 20.
     Dates: start: 20050207, end: 20060108

REACTIONS (11)
  - DEPRESSION [None]
  - DISTURBANCE IN ATTENTION [None]
  - DRY MOUTH [None]
  - DYSPNOEA [None]
  - EMOTIONAL DISTRESS [None]
  - FATIGUE [None]
  - HYPERTROPHIC CARDIOMYOPATHY [None]
  - INFLUENZA LIKE ILLNESS [None]
  - MENTAL DISORDER [None]
  - SKIN DISORDER [None]
  - WEIGHT DECREASED [None]
